FAERS Safety Report 5508318-6 (Version None)
Quarter: 2007Q4

REPORT INFORMATION
  Report Type: 
  Country: None (occurrence: None)
  Receive Date: 20071106
  Receipt Date: 20071012
  Transmission Date: 20080405
  Serious: No
  Sender: FDA-Public Use
  Company Number: US-BOEHRINGER INGELHEIM PHARMACEUTICALS, INC.-2007-BP-22609BP

PATIENT
  Sex: Male

DRUGS (5)
  1. COMBIVENT [Suspect]
     Indication: CHRONIC OBSTRUCTIVE PULMONARY DISEASE
     Route: 055
  2. XOPENEX HFA [Concomitant]
     Indication: CHRONIC OBSTRUCTIVE PULMONARY DISEASE
  3. EPIPEN [Concomitant]
  4. FLUNISOLIDE NASAL [Concomitant]
  5. PILOCARPINE [Concomitant]
     Indication: INTRAOCULAR PRESSURE TEST ABNORMAL

REACTIONS (2)
  - DYSPNOEA [None]
  - PRESYNCOPE [None]
